FAERS Safety Report 24607157 (Version 1)
Quarter: 2024Q4

REPORT INFORMATION
  Report Type: Spontaneous
  Country: US (occurrence: None)
  Receive Date: 20241110
  Receipt Date: 20241110
  Transmission Date: 20250115
  Serious: Yes (Life-Threatening, Hospitalization, Disabling, Other)
  Sender: Public
  Company Number: None

PATIENT
  Age: 48 Year
  Sex: Female
  Weight: 67.5 kg

DRUGS (3)
  1. TAXOTERE [Suspect]
     Active Substance: DOCETAXEL
  2. ELIQUIS [Concomitant]
     Active Substance: APIXABAN
  3. multivitamin [Concomitant]

REACTIONS (9)
  - Heart rate increased [None]
  - Fatigue [None]
  - Dyspnoea [None]
  - Pulmonary fibrosis [None]
  - Pericardial fibrosis [None]
  - Pulmonary toxicity [None]
  - Quality of life decreased [None]
  - Pericarditis [None]
  - Pleural effusion [None]

NARRATIVE: CASE EVENT DATE: 20240101
